FAERS Safety Report 19356254 (Version 1)
Quarter: 2021Q2

REPORT INFORMATION
  Report Type: Spontaneous
  Country: MY (occurrence: MY)
  Receive Date: 20210601
  Receipt Date: 20210601
  Transmission Date: 20210717
  Serious: Yes (Other)
  Sender: FDA-Public Use
  Company Number: MY-SUN PHARMACEUTICAL INDUSTRIES LTD-2021R1-298353

PATIENT
  Age: 60 Year
  Sex: Male

DRUGS (9)
  1. CAPECITABINE. [Suspect]
     Active Substance: CAPECITABINE
     Indication: METASTASES TO LIVER
     Dosage: 6 CYCLES
     Route: 065
  2. LAPATINIB [Suspect]
     Active Substance: LAPATINIB
     Indication: METASTASES TO LUNG
     Dosage: 8 CYCLES
     Route: 065
  3. LAPATINIB [Suspect]
     Active Substance: LAPATINIB
     Dosage: 1000 MILLIGRAM, QD (CONTINUOUSLY)
     Route: 065
  4. TRASTUZUMAB. [Suspect]
     Active Substance: TRASTUZUMAB
     Dosage: 6 MILLIGRAM/KILOGRAM DAY 1
     Route: 065
  5. LAPATINIB [Suspect]
     Active Substance: LAPATINIB
     Indication: METASTASES TO LIVER
     Dosage: 6 CYCLES
     Route: 065
  6. CAPECITABINE. [Suspect]
     Active Substance: CAPECITABINE
     Dosage: 1000 MILLIGRAM/SQ. METER EVERY 12 HOURS (DAY 1 TO 14) OF A 21 DAY
     Route: 065
  7. TRASTUZUMAB. [Suspect]
     Active Substance: TRASTUZUMAB
     Indication: METASTASES TO LIVER
     Dosage: 6 CYCLES
     Route: 065
  8. CAPECITABINE. [Suspect]
     Active Substance: CAPECITABINE
     Indication: METASTASES TO LUNG
     Dosage: 8 CYCLES
     Route: 065
  9. TRASTUZUMAB. [Suspect]
     Active Substance: TRASTUZUMAB
     Indication: METASTASES TO LUNG
     Dosage: 8 CYCLES
     Route: 065

REACTIONS (2)
  - Tumour marker increased [Unknown]
  - Disease progression [Unknown]

NARRATIVE: CASE EVENT DATE: 202009
